FAERS Safety Report 15693600 (Version 2)
Quarter: 2019Q1

REPORT INFORMATION
  Report Type: Spontaneous
  Country: US (occurrence: US)
  Receive Date: 20181206
  Receipt Date: 20190109
  Transmission Date: 20190417
  Serious: No
  Sender: FDA-Public Use
  Company Number: PHEH2018US050422

PATIENT
  Sex: Male

DRUGS (1)
  1. TRAVATAN Z [Suspect]
     Active Substance: TRAVOPROST
     Indication: PRODUCT USED FOR UNKNOWN INDICATION
     Route: 047

REACTIONS (4)
  - Product label issue [Unknown]
  - Product administration error [Unknown]
  - Product dropper issue [Unknown]
  - Product design issue [Unknown]
